FAERS Safety Report 10018393 (Version 1)
Quarter: 2014Q1

REPORT INFORMATION
  Report Type: Spontaneous
  Country: JP (occurrence: None)
  Receive Date: 20140312
  Receipt Date: 20140312
  Transmission Date: 20141002
  Serious: Yes (Hospitalization, Other)
  Sender: FDA-Public Use
  Company Number: CO-OR-JP-2014-023

PATIENT
  Age: 79 Year
  Sex: Female

DRUGS (2)
  1. PREDNISOLONE (PREDNISOLONE) [Suspect]
     Indication: SERONEGATIVE ARTHRITIS
  2. NONSTEROIDAL ANTI-INFLAMMATORY DRUG [Concomitant]

REACTIONS (3)
  - Prinzmetal angina [None]
  - Coronary artery stenosis [None]
  - Electrocardiogram ST segment elevation [None]
